FAERS Safety Report 7205284-2 (Version None)
Quarter: 2010Q4

REPORT INFORMATION
  Report Type: 
  Country: None (occurrence: None)
  Receive Date: 20101231
  Receipt Date: 20101221
  Transmission Date: 20110411
  Serious: No
  Sender: FDA-Public Use
  Company Number: US-BIOGENIDEC-2010BI044426

PATIENT
  Age: 60 Year
  Sex: Female

DRUGS (3)
  1. AVONEX [Suspect]
     Indication: MULTIPLE SCLEROSIS
     Route: 030
     Dates: start: 20040701
  2. PAIN PILLS (NOS) [Concomitant]
     Indication: BACK PAIN
  3. PAIN PILLS (NOS) [Concomitant]
     Indication: NECK PAIN

REACTIONS (8)
  - AURICULAR PERICHONDRITIS [None]
  - AUTOIMMUNE THYROIDITIS [None]
  - BLOOD THYROID STIMULATING HORMONE ABNORMAL [None]
  - EAR PAIN [None]
  - INSOMNIA [None]
  - PERICHONDRITIS [None]
  - THYROXINE ABNORMAL [None]
  - TRI-IODOTHYRONINE ABNORMAL [None]
